FAERS Safety Report 11650035 (Version 1)
Quarter: 2015Q4

REPORT INFORMATION
  Report Type: Spontaneous
  Country: US (occurrence: US)
  Receive Date: 20151021
  Receipt Date: 20151021
  Transmission Date: 20160304
  Serious: No
  Sender: FDA-Public Use
  Company Number: US-PURDUE-USA-2015-0125667

PATIENT
  Sex: Male

DRUGS (2)
  1. FIBER [Concomitant]
     Active Substance: PSYLLIUM HUSK
     Indication: BLOOD GLUCOSE INCREASED
     Route: 048
  2. OXYCONTIN [Suspect]
     Active Substance: OXYCODONE HYDROCHLORIDE
     Indication: PRODUCT USED FOR UNKNOWN INDICATION
     Dosage: UNK MG, UNK
     Route: 048

REACTIONS (10)
  - Prostate examination abnormal [Unknown]
  - Arthralgia [Unknown]
  - Skin exfoliation [Unknown]
  - Poor quality sleep [Unknown]
  - Dry skin [Unknown]
  - Somnolence [Unknown]
  - Skin haemorrhage [Unknown]
  - Diarrhoea [Unknown]
  - Fatigue [Unknown]
  - Dysgeusia [Unknown]
